FAERS Safety Report 17859852 (Version 1)
Quarter: 2020Q2

REPORT INFORMATION
  Report Type: Spontaneous
  Country: US (occurrence: US)
  Receive Date: 20200604
  Receipt Date: 20200604
  Transmission Date: 20200714
  Serious: Yes (Life-Threatening, Other)
  Sender: FDA-Public Use
  Company Number: None

PATIENT
  Sex: Female
  Weight: 54 kg

DRUGS (8)
  1. METROPROLAR TARTRATE [Concomitant]
  2. BUSPAR [Concomitant]
     Active Substance: BUSPIRONE HYDROCHLORIDE
  3. MELTONIN CAMOMILE TEA [Concomitant]
  4. VALIUM [Concomitant]
     Active Substance: DIAZEPAM
  5. TEMAZAPAM [Concomitant]
     Active Substance: TEMAZEPAM
  6. IBRUPROPHEN [Concomitant]
     Active Substance: IBUPROFEN
  7. GABAPENTIN. [Concomitant]
     Active Substance: GABAPENTIN
  8. NP THYROID [Suspect]
     Active Substance: LEVOTHYROXINE\LIOTHYRONINE
     Indication: HYPOTHYROIDISM
     Route: 048

REACTIONS (6)
  - Anxiety [None]
  - Insomnia [None]
  - Palpitations [None]
  - Tremor [None]
  - Blood pressure increased [None]
  - Heart rate increased [None]
